FAERS Safety Report 6715883-X (Version None)
Quarter: 2010Q2

REPORT INFORMATION
  Report Type: 
  Country: None (occurrence: None)
  Receive Date: 20100507
  Receipt Date: 20100426
  Transmission Date: 20101027
  Serious: Yes (Other)
  Sender: FDA-Public Use
  Company Number: PHHY2010US26835

PATIENT
  Sex: Male

DRUGS (6)
  1. TEKTURNA [Suspect]
     Dosage: 300 MG
  2. PRAVASTATIN [Concomitant]
  3. NIACIN [Concomitant]
  4. ASPIRIN [Concomitant]
     Dosage: 81 MG
  5. ANUCORT-HC [Concomitant]
     Dosage: 25 MG
     Dates: start: 20091201
  6. DOCUSATE SODIUM [Concomitant]
     Dosage: UNK

REACTIONS (1)
  - VISUAL ACUITY REDUCED [None]
